FAERS Safety Report 8228788 (Version 3)
Quarter: 2012Q4

REPORT INFORMATION
  Report Type: Report from Study
  Country: CA (occurrence: CA)
  Receive Date: 20111104
  Receipt Date: 20121106
  Transmission Date: 20130627
  Serious: Yes (Life-Threatening, Other)
  Sender: FDA-Public Use
  Company Number: CA-US-EMD SERONO, INC.-7093094

PATIENT
  Age: 26 Year
  Sex: Female

DRUGS (5)
  1. REBIF [Suspect]
     Indication: RELAPSING-REMITTING MULTIPLE SCLEROSIS
     Route: 058
     Dates: start: 20110615, end: 20110819
  2. REBIF [Suspect]
     Route: 058
     Dates: start: 20111002, end: 20111004
  3. NICOTINE PATCH [Concomitant]
     Indication: SMOKING CESSATION THERAPY
  4. ATIVAN [Concomitant]
     Indication: PANIC ATTACK
     Route: 048
     Dates: start: 200811
  5. ATIVAN [Concomitant]
     Indication: ANXIETY

REACTIONS (1)
  - Suicidal ideation [Recovered/Resolved]
